FAERS Safety Report 5166585-5 (Version None)
Quarter: 2006Q4

REPORT INFORMATION
  Report Type: 
  Country: None (occurrence: None)
  Receive Date: 20061201
  Receipt Date: 20061201
  Transmission Date: 20070319
  Serious: No
  Sender: FDA-Public Use
  Company Number: None

PATIENT
  Age: 56 Year
  Sex: Male
  Weight: 86.6 kg

DRUGS (1)
  1. EZETIMIBE/SIMVASTATIN 10/80 MG [Suspect]
     Indication: HYPERLIPIDAEMIA
     Dosage: 1 TABLET PO DAILY
     Route: 048
     Dates: start: 20060621, end: 20060929

REACTIONS (3)
  - BLOOD CREATINE PHOSPHOKINASE INCREASED [None]
  - LIVER FUNCTION TEST ABNORMAL [None]
  - MYALGIA [None]
